FAERS Safety Report 8725011 (Version 1)
Quarter: 2012Q4

REPORT INFORMATION
  Report Type: 
  Country: US (occurrence: US)
  Receive Date: 20120912
  Receipt Date: 20120912
  Transmission Date: 20130627
  Serious: Yes (Other)
  Sender: FDA-Public Use
  Company Number: US-ROCHE-1098950

PATIENT
  Age: 63 Year
  Sex: Male

DRUGS (4)
  1. ACTIVASE [Suspect]
     Indication: ACUTE MYOCARDIAL INFARCTION
     Route: 065
  2. TENORMIN [Suspect]
     Indication: PRODUCT USED FOR UNKNOWN INDICATION
     Route: 065
  3. TENORMIN [Suspect]
     Dosage: dose decreased
     Route: 065
  4. TOLINASE [Concomitant]

REACTIONS (5)
  - Atrioventricular block second degree [Unknown]
  - Hypotension [Unknown]
  - Bradycardia [Unknown]
  - Extrasystoles [Unknown]
  - Ventricular extrasystoles [Unknown]
